FAERS Safety Report 20924687 (Version 1)
Quarter: 2022Q2

REPORT INFORMATION
  Report Type: Spontaneous
  Country: IR (occurrence: IR)
  Receive Date: 20220607
  Receipt Date: 20220607
  Transmission Date: 20220721
  Serious: Yes (Other)
  Sender: FDA-Public Use
  Company Number: IR-LUPIN PHARMACEUTICALS INC.-2022-08149

PATIENT
  Age: 1 Year
  Sex: Female

DRUGS (8)
  1. METHYLPREDNISOLONE [Suspect]
     Active Substance: METHYLPREDNISOLONE
     Indication: Aplastic anaemia
     Dosage: UNK
     Route: 065
  2. CYCLOSPORINE [Suspect]
     Active Substance: CYCLOSPORINE
     Indication: Aplastic anaemia
     Dosage: UNK
     Route: 065
  3. CYCLOSPORINE [Suspect]
     Active Substance: CYCLOSPORINE
     Indication: Graft versus host disease
     Dosage: 1.5 MILLIGRAM/KILOGRAM, QD, ON DAY-1
     Route: 065
  4. CYCLOSPORINE [Suspect]
     Active Substance: CYCLOSPORINE
     Dosage: 3 MILLIGRAM/KILOGRAM,ON DAY +7
     Route: 065
  5. PRIVIGEN [Suspect]
     Active Substance: HUMAN IMMUNOGLOBULIN G
     Indication: Aplastic anaemia
     Dosage: UNK
     Route: 042
  6. FLUDARABINE [Concomitant]
     Active Substance: FLUDARABINE PHOSPHATE
     Indication: Drug therapy
     Dosage: 35 MILLIGRAM/SQ. METER, QD, ON DAYS -4 TO -1
     Route: 065
  7. CYCLOPHOSPHAMIDE [Concomitant]
     Active Substance: CYCLOPHOSPHAMIDE
     Indication: Drug therapy
     Dosage: 10 MILLIGRAM/KILOGRAM, QD, ON DAYS -4 TO -1
     Route: 065
  8. THYMOGLOBULINE [Concomitant]
     Active Substance: LAPINE T-LYMPHOCYTE IMMUNE GLOBULIN
     Indication: Drug therapy
     Dosage: 2.5 MILLIGRAM/KILOGRAM, QD, ON DAYS -4 TO -1
     Route: 065

REACTIONS (2)
  - Drug ineffective for unapproved indication [Unknown]
  - Off label use [Unknown]
